FAERS Safety Report 23760178 (Version 1)
Quarter: 2024Q2

REPORT INFORMATION
  Report Type: Spontaneous
  Country: US (occurrence: US)
  Receive Date: 20240419
  Receipt Date: 20240419
  Transmission Date: 20240716
  Serious: Yes (Death, Other)
  Sender: FDA-Public Use
  Company Number: US-AMGEN-USASP2024076333

PATIENT
  Sex: Female

DRUGS (1)
  1. PROLIA [Suspect]
     Active Substance: DENOSUMAB
     Indication: Product used for unknown indication
     Dosage: 60 MILLIGRAM, UNK
     Route: 058

REACTIONS (4)
  - Lung disorder [Fatal]
  - Vascular device user [Fatal]
  - Large intestine perforation [Fatal]
  - Rheumatoid arthritis [Unknown]
